FAERS Safety Report 4509890-5 (Version None)
Quarter: 2004Q4

REPORT INFORMATION
  Report Type: 
  Country: None (occurrence: None)
  Receive Date: 20041119
  Receipt Date: 20041104
  Transmission Date: 20050328
  Serious: Yes (Death)
  Sender: FDA-Public Use
  Company Number: EWC041041116

PATIENT
  Age: 53 Year
  Sex: Male
  Weight: 80 kg

DRUGS (1)
  1. HUMATROPE [Suspect]
     Indication: HYPOPITUITARISM
     Dosage: 0.2 MG DAY
     Dates: start: 19970212

REACTIONS (5)
  - ANOXIA [None]
  - ASPIRATION [None]
  - BRAIN NEOPLASM [None]
  - EPILEPSY [None]
  - NEOPLASM RECURRENCE [None]
